FAERS Safety Report 5253846-4 (Version None)
Quarter: 2007Q1

REPORT INFORMATION
  Report Type: 
  Country: None (occurrence: None)
  Receive Date: 20070227
  Receipt Date: 20070212
  Transmission Date: 20070707
  Serious: Yes (Other)
  Sender: FDA-Public Use
  Company Number: 225779

PATIENT
  Age: 78 Year
  Sex: Female

DRUGS (2)
  1. AVASTIN [Suspect]
     Indication: MACULAR DEGENERATION
     Dosage: 1 MG, SINGLE, INTRAVITREAL
  2. GENTAMICIN [Concomitant]

REACTIONS (6)
  - CONJUNCTIVAL HYPERAEMIA [None]
  - CORNEAL OEDEMA [None]
  - DRUG HYPERSENSITIVITY [None]
  - EYE PAIN [None]
  - LATEX ALLERGY [None]
  - PHARMACEUTICAL PRODUCT COMPLAINT [None]
